FAERS Safety Report 12754030 (Version 1)
Quarter: 2016Q3

REPORT INFORMATION
  Report Type: Report from Study
  Country: BR (occurrence: BR)
  Receive Date: 20160916
  Receipt Date: 20160916
  Transmission Date: 20161109
  Serious: Yes (Other)
  Sender: FDA-Public Use
  Company Number: PHHY2016BR125608

PATIENT
  Sex: Female
  Weight: 66 kg

DRUGS (2)
  1. GALVUS MET [Suspect]
     Active Substance: METFORMIN HYDROCHLORIDE\VILDAGLIPTIN
     Indication: DIABETES MELLITUS
     Dosage: 2 DF (METFORMIN 850 MG / VILDAGLIPTIN 50 MG), BID (ONE AFTER BREAKFAST AND ANOTHER TABLET AFTER DIN)
     Route: 048
  2. METFORMIN [Suspect]
     Active Substance: METFORMIN HYDROCHLORIDE
     Indication: DIABETES MELLITUS
     Route: 048

REACTIONS (4)
  - Drug ineffective [Unknown]
  - Tinnitus [Recovering/Resolving]
  - Thyroid cancer [Unknown]
  - Diabetes mellitus [Unknown]
